FAERS Safety Report 7830402-2 (Version None)
Quarter: 2011Q4

REPORT INFORMATION
  Report Type: 
  Country: None (occurrence: None)
  Receive Date: 20111021
  Receipt Date: 20111011
  Transmission Date: 20120403
  Serious: Yes (Hospitalization)
  Sender: FDA-Public Use
  Company Number: US-PFIZER INC-2011227335

PATIENT
  Sex: Male
  Weight: 65 kg

DRUGS (5)
  1. NEURONTIN [Concomitant]
     Indication: NEUROPATHY PERIPHERAL
     Dosage: 300 MG, QD, MOST RECENT DOSE BEFORE EVENT: 22SEP2011
     Route: 048
  2. ERLOTINIB HYDROCHLORIDE [Suspect]
     Indication: NON-SMALL CELL LUNG CANCER
     Dosage: 100 MG, 1X/DAY, CONTINUOUS
     Route: 048
     Dates: start: 20110822, end: 20110912
  3. COMBIVENT [Concomitant]
     Indication: CHRONIC OBSTRUCTIVE PULMONARY DISEASE
     Dosage: 2 DF, 3X/DAY, MOST RECENT DOSE BEFORE EVENT: 22SEP2011
     Route: 055
  4. SPIRIVA [Concomitant]
     Indication: DYSPNOEA
     Dosage: UNK, 2X/DAY, MOST RECENT DOSE BEFORE EVENT: 22SEP2011
     Route: 055
  5. CRIZOTINIB [Suspect]
     Indication: NON-SMALL CELL LUNG CANCER
     Dosage: 150 MG, 2X/DAY, CONTINUOUS
     Route: 048
     Dates: start: 20110830, end: 20110912

REACTIONS (1)
  - VENOUS THROMBOSIS [None]
